FAERS Safety Report 8646568 (Version 6)
Quarter: 2013Q3

REPORT INFORMATION
  Report Type: Spontaneous
  Country: US (occurrence: US)
  Receive Date: 20120702
  Receipt Date: 20130926
  Transmission Date: 20140515
  Serious: Yes (Hospitalization, Disabling, Other)
  Sender: FDA-Public Use
  Company Number: US-009507513-1207USA00054

PATIENT
  Sex: Female
  Weight: 86.17 kg

DRUGS (5)
  1. FERROUS SULFATE [Concomitant]
     Dosage: UNK
     Dates: start: 1992, end: 2012
  2. FOSAMAX [Suspect]
     Indication: OSTEOPOROSIS
     Dosage: 70 MG, QW
     Route: 048
     Dates: start: 20031104, end: 20061129
  3. ASCORBIC ACID [Concomitant]
     Dosage: UNK
     Dates: start: 1992, end: 2012
  4. VITAMIN D (UNSPECIFIED) [Concomitant]
     Dosage: UNK
     Dates: start: 1992, end: 2012
  5. VITAMIN E [Concomitant]
     Dosage: UNK
     Dates: start: 1992, end: 2012

REACTIONS (128)
  - Femur fracture [Not Recovered/Not Resolved]
  - Femur fracture [Unknown]
  - Knee arthroplasty [Unknown]
  - Knee arthroplasty [Unknown]
  - Knee arthroplasty [Unknown]
  - Femur fracture [Unknown]
  - Knee arthroplasty [Unknown]
  - Surgical failure [Unknown]
  - Acute disseminated encephalomyelitis [Unknown]
  - Wound treatment [Unknown]
  - Leg amputation [Unknown]
  - Osteoporosis [Not Recovered/Not Resolved]
  - Stress fracture [Not Recovered/Not Resolved]
  - Femur fracture [Not Recovered/Not Resolved]
  - Intramedullary rod insertion [Unknown]
  - Medical device removal [Unknown]
  - Medical device removal [Unknown]
  - Arthrodesis [Unknown]
  - Osteomyelitis [Unknown]
  - Low turnover osteopathy [Not Recovered/Not Resolved]
  - Tibia fracture [Unknown]
  - Debridement [Unknown]
  - Knee arthroplasty [Unknown]
  - Medical device removal [Unknown]
  - Medical device removal [Unknown]
  - Medical device removal [Unknown]
  - Infection [Unknown]
  - Depression [Unknown]
  - Tooth disorder [Unknown]
  - Tooth disorder [Unknown]
  - Oral infection [Unknown]
  - Dental caries [Unknown]
  - Impaired healing [Unknown]
  - Temporomandibular joint syndrome [Unknown]
  - Abscess [Unknown]
  - Impaired healing [Unknown]
  - Edentulous [Unknown]
  - Periodontal operation [Unknown]
  - Periodontal operation [Unknown]
  - Oral surgery [Unknown]
  - Oral surgery [Unknown]
  - Endodontic procedure [Unknown]
  - Endodontic procedure [Unknown]
  - Gingival disorder [Unknown]
  - Gingival disorder [Unknown]
  - Dental care [Unknown]
  - Dental care [Unknown]
  - Bone trimming [Unknown]
  - Bone trimming [Unknown]
  - Bone disorder [Unknown]
  - Osteopetrosis [Unknown]
  - Fungal infection [Unknown]
  - Infection [Unknown]
  - Phantom pain [Unknown]
  - Knee deformity [Unknown]
  - Weight increased [Unknown]
  - Fall [Unknown]
  - Artificial crown procedure [Unknown]
  - Artificial crown procedure [Unknown]
  - Dental caries [Unknown]
  - Artificial crown procedure [Unknown]
  - Artificial crown procedure [Unknown]
  - Dental fistula [Unknown]
  - Tooth fracture [Unknown]
  - Artificial crown procedure [Unknown]
  - Autoimmune haemolytic anaemia [Unknown]
  - Autoimmune hepatitis [Unknown]
  - Increased appetite [Unknown]
  - Obsessive-compulsive disorder [Unknown]
  - Irritability [Unknown]
  - Anger [Unknown]
  - Type 2 diabetes mellitus [Unknown]
  - Stasis dermatitis [Unknown]
  - Artificial crown procedure [Unknown]
  - Anxiety [Unknown]
  - Liver disorder [Unknown]
  - Fracture malunion [Unknown]
  - Pain [Unknown]
  - Arthropathy [Unknown]
  - Fall [Unknown]
  - Osteoarthritis [Unknown]
  - Atrophy [Unknown]
  - Cellulitis [Unknown]
  - Infection [Unknown]
  - Device dislocation [Unknown]
  - Impaired healing [Recovered/Resolved]
  - Wound secretion [Unknown]
  - Chronic hepatitis [Not Recovered/Not Resolved]
  - Portal hypertension [Unknown]
  - Limb asymmetry [Unknown]
  - Incisional drainage [Unknown]
  - Eschar [Unknown]
  - Osteoarthritis [Unknown]
  - Device failure [Unknown]
  - Arthralgia [Unknown]
  - Arthralgia [Unknown]
  - Joint swelling [Recovering/Resolving]
  - Back pain [Unknown]
  - Rash [Recovering/Resolving]
  - Hepatic cirrhosis [Unknown]
  - Splenomegaly [Unknown]
  - Cholelithiasis [Unknown]
  - Arteriosclerosis [Unknown]
  - Intervertebral disc degeneration [Unknown]
  - Rib fracture [Recovered/Resolved]
  - Cervical radiculopathy [Unknown]
  - Foot fracture [Unknown]
  - Limb deformity [Unknown]
  - Wrist fracture [Unknown]
  - Knee arthroplasty [Unknown]
  - Debridement [Unknown]
  - Joint irrigation [Unknown]
  - Biopsy liver [Unknown]
  - Bone graft [Unknown]
  - Peripheral vascular disorder [Unknown]
  - Hypercholesterolaemia [Unknown]
  - Urinary incontinence [Unknown]
  - Adverse drug reaction [Unknown]
  - Debridement [Unknown]
  - Joint irrigation [Unknown]
  - Medical device removal [Unknown]
  - Antibiotic therapy [Unknown]
  - Debridement [Unknown]
  - Joint irrigation [Unknown]
  - Headache [Unknown]
  - Staphylococcal infection [Unknown]
  - Infection [Unknown]
  - Gastrooesophageal reflux disease [Unknown]
